FAERS Safety Report 7159516-X (Version None)
Quarter: 2010Q4

REPORT INFORMATION
  Report Type: 
  Country: None (occurrence: None)
  Receive Date: 20101214
  Receipt Date: 20100915
  Transmission Date: 20110411
  Serious: No
  Sender: FDA-Public Use
  Company Number: US-ASTRAZENECA-2010SE43456

PATIENT
  Sex: Female

DRUGS (1)
  1. CRESTOR [Suspect]
     Dosage: TOOK THREE CRESTOR TABLETS ( DOSED EVERY OTHER DAY)
     Route: 048
     Dates: start: 20100301, end: 20100301

REACTIONS (3)
  - GAIT DISTURBANCE [None]
  - PAIN [None]
  - WEIGHT INCREASED [None]
